FAERS Safety Report 8332470-0 (Version None)
Quarter: 2012Q2

REPORT INFORMATION
  Report Type: 
  Country: None (occurrence: None)
  Receive Date: 20120503
  Receipt Date: 20120428
  Transmission Date: 20120825
  Serious: No
  Sender: FDA-Public Use
  Company Number: US-PFIZER INC-2012105424

PATIENT
  Sex: Female
  Weight: 60.3 kg

DRUGS (1)
  1. ADVIL LIQUI-GELS [Suspect]
     Indication: DYSMENORRHOEA
     Dosage: 200 MG, AS NEEDED

REACTIONS (1)
  - LIP SWELLING [None]
